FAERS Safety Report 6647490-1 (Version None)
Quarter: 2010Q1

REPORT INFORMATION
  Report Type: 
  Country: None (occurrence: None)
  Receive Date: 20100323
  Receipt Date: 20100310
  Transmission Date: 20100710
  Serious: Yes (Disabling, Other)
  Sender: FDA-Public Use
  Company Number: US-ROCHE-622161

PATIENT
  Sex: Male
  Weight: 93 kg

DRUGS (4)
  1. ACCUTANE [Suspect]
     Indication: ACNE
     Route: 048
     Dates: start: 19890101, end: 19900101
  2. ACCUTANE [Suspect]
     Route: 048
     Dates: start: 20050824, end: 20050921
  3. ACCUTANE [Suspect]
     Route: 048
     Dates: start: 20050928, end: 20051230
  4. AMNESTEEM [Suspect]
     Indication: ACNE
     Route: 065
     Dates: start: 20051218, end: 20060101

REACTIONS (10)
  - ANXIETY [None]
  - BLOOD CHOLESTEROL INCREASED [None]
  - BLOOD TRIGLYCERIDES INCREASED [None]
  - CROHN'S DISEASE [None]
  - INFLAMMATORY BOWEL DISEASE [None]
  - LIP DRY [None]
  - MAJOR DEPRESSION [None]
  - NEUTROPHIL COUNT INCREASED [None]
  - STRESS [None]
  - WHITE BLOOD CELL COUNT INCREASED [None]
